FAERS Safety Report 4779436-5 (Version None)
Quarter: 2005Q3

REPORT INFORMATION
  Report Type: 
  Country: None (occurrence: None)
  Receive Date: 20050923
  Receipt Date: 20050708
  Transmission Date: 20060218
  Serious: Yes (Hospitalization)
  Sender: FDA-Public Use
  Company Number: USA0507102376

PATIENT
  Age: 72 Year
  Sex: Female

DRUGS (1)
  1. FORTEO [Suspect]
     Indication: OSTEOPOROSIS
     Dates: start: 20040901

REACTIONS (4)
  - DIFFICULTY IN WALKING [None]
  - DYSPNOEA [None]
  - PNEUMONIA [None]
  - RESPIRATORY TRACT CONGESTION [None]
